FAERS Safety Report 25008336 (Version 1)
Quarter: 2025Q1

REPORT INFORMATION
  Report Type: Spontaneous
  Country: US (occurrence: US)
  Receive Date: 20250225
  Receipt Date: 20250225
  Transmission Date: 20250408
  Serious: Yes (Hospitalization, Other)
  Sender: AUROBINDO
  Company Number: US-AUROBINDO-AUR-APL-2025-008924

PATIENT
  Age: 3 Decade
  Sex: Male

DRUGS (7)
  1. COLCHICINE [Suspect]
     Active Substance: COLCHICINE
     Indication: Myopericarditis
     Dosage: 0.6 MILLIGRAM, TWO TIMES A DAY
     Route: 065
  2. HEPARIN [Concomitant]
     Active Substance: HEPARIN SODIUM
     Indication: Myopericarditis
     Route: 065
  3. HEPARIN [Concomitant]
     Active Substance: HEPARIN SODIUM
     Indication: Thrombosis
  4. HEPARIN [Concomitant]
     Active Substance: HEPARIN SODIUM
     Indication: Antiphospholipid syndrome
  5. WARFARIN [Concomitant]
     Active Substance: WARFARIN
     Indication: Vena cava thrombosis
     Route: 065
  6. WARFARIN [Concomitant]
     Active Substance: WARFARIN
     Indication: Antiphospholipid syndrome
  7. PREDNISONE [Concomitant]
     Active Substance: PREDNISONE
     Indication: Antiphospholipid syndrome
     Route: 048

REACTIONS (1)
  - Drug ineffective [Unknown]
